FAERS Safety Report 13759160 (Version 2)
Quarter: 2017Q3

REPORT INFORMATION
  Report Type: Report from Study
  Country: US (occurrence: BR)
  Receive Date: 20170717
  Receipt Date: 20170814
  Transmission Date: 20171127
  Serious: No
  Sender: FDA-Public Use
  Company Number: US-SUNOVION-2017SUN003051

PATIENT
  Sex: Female
  Weight: 34 kg

DRUGS (4)
  1. INDACATEROL AND GLYCOPYRROLATE [Suspect]
     Active Substance: GLYCOPYRROLATE\INDACATEROL MALEATE
     Indication: CHRONIC OBSTRUCTIVE PULMONARY DISEASE
     Dosage: 1 DF (GLYCOPYRRONIUM BROMIDE 50 UG/ INDACATEROL 110 UG), QD
     Route: 055
  2. OXIMAX [Concomitant]
     Active Substance: MOMETASONE FUROATE
     Dosage: UNK
     Route: 048
  3. ENSURE [Concomitant]
     Active Substance: AMINO ACIDS\DEXTROSE\ELECTROLYTES NOS\SOYBEAN OIL\VITAMINS
     Dosage: UNK
  4. AEROLIN [Concomitant]
     Active Substance: ALBUTEROL
     Dosage: 110 UG, UNK

REACTIONS (2)
  - Weight decreased [Unknown]
  - Fatigue [Unknown]
